FAERS Safety Report 7532500-X (Version None)
Quarter: 2011Q2

REPORT INFORMATION
  Report Type: 
  Country: None (occurrence: None)
  Receive Date: 20110608
  Receipt Date: 20110526
  Transmission Date: 20111010
  Serious: Yes (Other)
  Sender: FDA-Public Use
  Company Number: PHHY2011IT46200

PATIENT
  Age: 70 Year
  Sex: Male

DRUGS (6)
  1. MERREM [Suspect]
     Indication: INFECTION
     Dosage: 6 G, QD
     Dates: start: 20110408, end: 20110428
  2. ENOXAPARIN SODIUM [Concomitant]
     Dosage: UNK
     Route: 058
  3. DIFLUCAN [Suspect]
     Indication: INFECTION
     Dosage: 100 MG, QD
     Route: 048
     Dates: start: 20110408, end: 20110428
  4. OXCARBAZEPINE [Suspect]
     Dosage: 600 MG, QD
     Route: 048
     Dates: start: 20110409, end: 20110428
  5. TARGOCID [Suspect]
     Dosage: 200 MG/3 ML
     Route: 042
     Dates: start: 20110408, end: 20110428
  6. SEROQUEL [Concomitant]
     Dosage: UNK
     Route: 048

REACTIONS (2)
  - BONE MARROW FAILURE [None]
  - ERYTHEMA [None]
